FAERS Safety Report 19086870 (Version 4)
Quarter: 2022Q3

REPORT INFORMATION
  Report Type: Spontaneous
  Country: JP (occurrence: JP)
  Receive Date: 20210402
  Receipt Date: 20220714
  Transmission Date: 20221027
  Serious: Yes (Other)
  Sender: FDA-Public Use
  Company Number: JP-GSKNCCC-CASE-01179360_AE-42644

PATIENT

DRUGS (1)
  1. REQUIP [Suspect]
     Active Substance: ROPINIROLE HYDROCHLORIDE
     Indication: Parkinson^s disease
     Dosage: 2 MG, QD
     Route: 048

REACTIONS (4)
  - Parkinson^s disease [Not Recovered/Not Resolved]
  - Gastric fistula [Not Recovered/Not Resolved]
  - Dysphagia [Not Recovered/Not Resolved]
  - Lack of spontaneous speech [Not Recovered/Not Resolved]

NARRATIVE: CASE EVENT DATE: 20190101
